FAERS Safety Report 9437123 (Version 3)
Quarter: 2013Q3

REPORT INFORMATION
  Report Type: Spontaneous
  Country: FR (occurrence: FR)
  Receive Date: 20130802
  Receipt Date: 20130827
  Transmission Date: 20140515
  Serious: Yes (Hospitalization, Other)
  Sender: FDA-Public Use
  Company Number: FR-JNJFOC-20130715043

PATIENT
  Age: 46 Year
  Sex: Female
  Weight: 62 kg

DRUGS (3)
  1. CAELYX [Suspect]
     Indication: BREAST CANCER
     Dosage: 87.5 MG
     Route: 042
     Dates: start: 20130722, end: 20130722
  2. ONDANSETRON [Concomitant]
     Indication: ANTIEMETIC SUPPORTIVE CARE
     Route: 042
     Dates: start: 20120921
  3. GLUCOSE [Concomitant]
     Indication: INFUSION
     Route: 042
     Dates: start: 20120921

REACTIONS (3)
  - Feeling hot [Recovered/Resolved]
  - Erythema [Recovered/Resolved]
  - Respiratory disorder [Recovered/Resolved]
